FAERS Safety Report 9181193 (Version 1)
Quarter: 2013Q1

REPORT INFORMATION
  Report Type: Spontaneous
  Country: US (occurrence: US)
  Receive Date: 20130322
  Receipt Date: 20130322
  Transmission Date: 20140127
  Serious: No
  Sender: FDA-Public Use
  Company Number: US-MYLANLABS-2012S1017515

PATIENT
  Age: 82 Year
  Sex: Female

DRUGS (6)
  1. CYMBALTA [Suspect]
     Indication: DEPRESSION
     Dates: end: 201208
  2. EMSAM [Suspect]
     Indication: DEPRESSION
     Dosage: CHANGES DAILY
     Route: 062
     Dates: start: 20120807
  3. ATIVAN [Concomitant]
     Indication: ANXIETY
  4. SEROQUEL [Concomitant]
     Indication: INSOMNIA
     Route: 048
  5. NORVASC [Concomitant]
     Indication: BLOOD PRESSURE INCREASED
  6. LEVOTHYROXINE [Concomitant]
     Indication: HYPOTHYROIDISM

REACTIONS (2)
  - Drug ineffective [Not Recovered/Not Resolved]
  - Depression [Not Recovered/Not Resolved]
